FAERS Safety Report 5680190-3 (Version None)
Quarter: 2008Q1

REPORT INFORMATION
  Report Type: 
  Country: None (occurrence: None)
  Receive Date: 20080326
  Receipt Date: 20080324
  Transmission Date: 20080703
  Serious: Yes (Other)
  Sender: FDA-Public Use
  Company Number: VE-BRISTOL-MYERS SQUIBB COMPANY-14123830

PATIENT
  Age: 39 Year
  Sex: Female

DRUGS (1)
  1. MITOMYCIN [Suspect]
     Indication: GLAUCOMA
     Dosage: 1 DOSAGE FORM = 0.4MG/ML

REACTIONS (1)
  - RETINOPATHY [None]
